FAERS Safety Report 17730551 (Version 6)
Quarter: 2020Q3

REPORT INFORMATION
  Report Type: Spontaneous
  Country: JP (occurrence: JP)
  Receive Date: 20200430
  Receipt Date: 20200721
  Transmission Date: 20201102
  Serious: Yes (Death, Hospitalization, Other)
  Sender: FDA-Public Use
  Company Number: JP-009507513-2004JPN001323J

PATIENT
  Age: 68 Year
  Sex: Male
  Weight: 59 kg

DRUGS (6)
  1. KEYTRUDA [Suspect]
     Active Substance: PEMBROLIZUMAB
     Dosage: UNK
     Route: 041
     Dates: start: 2020, end: 2020
  2. KEYTRUDA [Suspect]
     Active Substance: PEMBROLIZUMAB
     Indication: NON-SMALL CELL LUNG CANCER
     Dosage: 200 MILLIGRAM, Q3W
     Route: 041
     Dates: start: 20191106, end: 20200226
  3. TAKECAB [Concomitant]
     Active Substance: VONOPRAZAN FUMARATE
     Dosage: 1 DOSAGE FORM, QD
     Route: 048
     Dates: start: 20191218, end: 20200514
  4. PEMETREXED DISODIUM [Concomitant]
     Active Substance: PEMETREXED DISODIUM
     Indication: NON-SMALL CELL LUNG CANCER
     Dosage: 823.5 MILLIGRAM(500MG/M2), Q3W
     Route: 041
     Dates: start: 20191106, end: 20200226
  5. E KEPPRA [Concomitant]
     Active Substance: LEVETIRACETAM
     Dosage: 4 DOSAGE FORM, BID
     Route: 048
     Dates: start: 20190926, end: 20200514
  6. CARBOPLATIN. [Concomitant]
     Active Substance: CARBOPLATIN
     Indication: NON-SMALL CELL LUNG CANCER
     Dosage: 457.5 MILLIGRAM(AUC5,GFR665),Q3W
     Route: 041
     Dates: start: 20191106, end: 20200115

REACTIONS (7)
  - Immune-mediated hepatic disorder [Fatal]
  - Adrenal insufficiency [Recovering/Resolving]
  - Disseminated intravascular coagulation [Fatal]
  - Oral candidiasis [Unknown]
  - Dysphagia [Unknown]
  - Platelet count decreased [Unknown]
  - Pain [Unknown]

NARRATIVE: CASE EVENT DATE: 20200121
